FAERS Safety Report 19036592 (Version 1)
Quarter: 2021Q1

REPORT INFORMATION
  Report Type: Spontaneous
  Country: US (occurrence: US)
  Receive Date: 20210319
  Receipt Date: 20210319
  Transmission Date: 20210420
  Serious: Yes (Other)
  Sender: FDA-Public Use
  Company Number: None

PATIENT
  Age: 48 Year
  Sex: Male
  Weight: 119.9 kg

DRUGS (2)
  1. AVANOS HOMEPUMP 0?SERIES 270ML 5ML/HR 0270050 [Suspect]
     Active Substance: DEVICE
  2. FLUOROURACIL. [Suspect]
     Active Substance: FLUOROURACIL

REACTIONS (1)
  - Drug dose omission by device [None]

NARRATIVE: CASE EVENT DATE: 20210310
